FAERS Safety Report 8293793-7 (Version None)
Quarter: 2012Q2

REPORT INFORMATION
  Report Type: 
  Country: None (occurrence: None)
  Receive Date: 20120413
  Receipt Date: 20120404
  Transmission Date: 20120825
  Serious: Yes (Other)
  Sender: FDA-Public Use
  Company Number: IMP_05834_2012

PATIENT
  Age: 84 Year
  Sex: Female

DRUGS (3)
  1. ASPIRIN [Concomitant]
  2. DOXYCYCLINE [Suspect]
     Indication: DENTAL OPERATION
     Dosage: DF
  3. LEVOTHYROXINE SODIUM [Concomitant]

REACTIONS (2)
  - CUTANEOUS LUPUS ERYTHEMATOSUS [None]
  - FATIGUE [None]
